FAERS Safety Report 4316311-4 (Version None)
Quarter: 2004Q1

REPORT INFORMATION
  Report Type: 
  Country: None (occurrence: None)
  Receive Date: 20040310
  Receipt Date: 20030903
  Transmission Date: 20041129
  Serious: Yes (Hospitalization, Other)
  Sender: FDA-Public Use
  Company Number: HQWYE492104SEP03

PATIENT
  Age: 10 Year
  Sex: Male
  Weight: 54.48 kg

DRUGS (5)
  1. PROTONIX [Suspect]
     Indication: ABDOMINAL PAIN
     Dosage: 40 MG, ORAL
     Route: 048
     Dates: start: 20030701, end: 20030801
  2. PROTONIX [Suspect]
     Indication: HAEMATEMESIS
     Dosage: 40 MG, ORAL
     Route: 048
     Dates: start: 20030701, end: 20030801
  3. PROTONIX [Suspect]
     Indication: ABDOMINAL PAIN
     Dosage: 40 MG 1 X PER 1 DAY, INTRAVENOUS
     Route: 042
     Dates: start: 20030701, end: 20030701
  4. PROTONIX [Suspect]
     Indication: HAEMATEMESIS
     Dosage: 40 MG 1 X PER 1 DAY, INTRAVENOUS
     Route: 042
     Dates: start: 20030701, end: 20030701
  5. TYLENOL [Concomitant]

REACTIONS (1)
  - HAEMATURIA [None]
